FAERS Safety Report 9262500 (Version 1)
Quarter: 2013Q2

REPORT INFORMATION
  Report Type: Spontaneous
  Country: US (occurrence: None)
  Receive Date: 20130425
  Receipt Date: 20130425
  Transmission Date: 20140414
  Serious: Yes (Death, Hospitalization)
  Sender: FDA-Public Use
  Company Number: US-LHC-2013021

PATIENT
  Sex: Female

DRUGS (8)
  1. CARBON DIOXIDE [Suspect]
     Indication: PNEUMOPERITONEUM
     Dosage: PROCEDURE IN 40 MINUTES
  2. HYDROCORTISONE [Concomitant]
  3. MIDAZOLAM [Concomitant]
  4. FENTANYL [Concomitant]
  5. PROPOFOL [Concomitant]
  6. DESFLURANE [Concomitant]
  7. VECURONIUM [Concomitant]
  8. PROPOXYPHENE [Concomitant]

REACTIONS (10)
  - Intestinal infarction [None]
  - Post procedural complication [None]
  - Platelet count decreased [None]
  - Sinus tachycardia [None]
  - Electrocardiogram ST segment abnormal [None]
  - Cardiac arrest [None]
  - Intestinal infarction [None]
  - Aspartate aminotransferase increased [None]
  - Blood lactate dehydrogenase increased [None]
  - Amylase increased [None]
